FAERS Safety Report 7108374-8 (Version None)
Quarter: 2010Q4

REPORT INFORMATION
  Report Type: 
  Country: None (occurrence: None)
  Receive Date: 20101117
  Receipt Date: 20101110
  Transmission Date: 20110411
  Serious: Yes (Hospitalization)
  Sender: FDA-Public Use
  Company Number: A0798482A

PATIENT
  Age: 56 Year
  Sex: Female
  Weight: 130.9 kg

DRUGS (7)
  1. AVANDIA [Suspect]
     Dosage: 4MG PER DAY
     Route: 048
     Dates: start: 19990201, end: 20070620
  2. ALBUTEROL [Concomitant]
  3. PRAVACHOL [Concomitant]
  4. CALAN [Concomitant]
  5. AVAPRO [Concomitant]
  6. AZMACORT [Concomitant]
  7. FLUTICASONE PROPIONATE [Concomitant]

REACTIONS (2)
  - DEPRESSION [None]
  - RENAL FAILURE CHRONIC [None]
